FAERS Safety Report 16086557 (Version 1)
Quarter: 2019Q1

REPORT INFORMATION
  Report Type: Report from Study
  Country: NL (occurrence: NL)
  Receive Date: 20190318
  Receipt Date: 20190318
  Transmission Date: 20190418
  Serious: Yes (Death)
  Sender: FDA-Public Use
  Company Number: NL-ACTELION-A-NJ2019-187702

PATIENT
  Age: 81 Year
  Sex: Female

DRUGS (1)
  1. VENTAVIS [Suspect]
     Active Substance: ILOPROST
     Indication: PULMONARY ARTERIAL HYPERTENSION
     Dosage: 5 MCG, 6 TIMES A DAY
     Route: 055
     Dates: end: 20190311

REACTIONS (1)
  - Death [Fatal]

NARRATIVE: CASE EVENT DATE: 20190311
